FAERS Safety Report 5127362-4 (Version None)
Quarter: 2006Q4

REPORT INFORMATION
  Report Type: 
  Country: None (occurrence: None)
  Receive Date: 20061010
  Receipt Date: 20060926
  Transmission Date: 20070319
  Serious: Yes (Other)
  Sender: FDA-Public Use
  Company Number: B0393340A

PATIENT
  Age: 27 Year
  Sex: Female

DRUGS (2)
  1. PAXIL [Suspect]
     Indication: DEPRESSION
     Dosage: 10 MG / IN THE MORNING/
     Dates: start: 20050622, end: 20050728
  2. OXAZEPAM [Concomitant]

REACTIONS (4)
  - CONTUSION [None]
  - ECCHYMOSIS [None]
  - HAEMORRHAGE SUBCUTANEOUS [None]
  - LEUKOCYTOSIS [None]
